FAERS Safety Report 25722357 (Version 1)
Quarter: 2025Q3

REPORT INFORMATION
  Report Type: Report from Study
  Country: CA (occurrence: CA)
  Receive Date: 20250825
  Receipt Date: 20250825
  Transmission Date: 20251020
  Serious: Yes (Other)
  Sender: AMGEN
  Company Number: CA-Vifor (International) Inc.-VIT-2023-07876

PATIENT
  Age: 82 Year
  Sex: Male

DRUGS (2)
  1. AVACOPAN [Suspect]
     Active Substance: AVACOPAN
     Indication: Anti-neutrophil cytoplasmic antibody positive vasculitis
     Dosage: 30 MG, OD
     Route: 048
     Dates: start: 20230107, end: 202307
  2. AVACOPAN [Suspect]
     Active Substance: AVACOPAN
     Dosage: BID (RESTARTED)
     Route: 048
     Dates: start: 20240715

REACTIONS (1)
  - Osteomyelitis [Recovered/Resolved]

NARRATIVE: CASE EVENT DATE: 20230101
